FAERS Safety Report 19718382 (Version 1)
Quarter: 2021Q3

REPORT INFORMATION
  Report Type: Spontaneous
  Country: US (occurrence: US)
  Receive Date: 20210818
  Receipt Date: 20210818
  Transmission Date: 20211014
  Serious: No
  Sender: FDA-Public Use
  Company Number: None

PATIENT
  Age: 67 Year
  Sex: Female
  Weight: 62.55 kg

DRUGS (7)
  1. VITAMIN D [Concomitant]
     Active Substance: VITAMIN D NOS
  2. VITAMIN C [Concomitant]
     Active Substance: ASCORBIC ACID
  3. ZYRTEC [Concomitant]
     Active Substance: CETIRIZINE HYDROCHLORIDE
  4. EMGALITY [Suspect]
     Active Substance: GALCANEZUMAB-GNLM
     Indication: MIGRAINE
     Dosage: ?          OTHER FREQUENCY:MONTHLY;OTHER ROUTE:INJECTION INTO LEG?
     Dates: start: 20210129, end: 20210602
  5. LEXAPRO [Concomitant]
     Active Substance: ESCITALOPRAM OXALATE
  6. TUMS [Concomitant]
     Active Substance: CALCIUM CARBONATE
  7. BOTOX [Concomitant]
     Active Substance: ONABOTULINUMTOXINA

REACTIONS (3)
  - Restless legs syndrome [None]
  - Migraine [None]
  - Poor quality sleep [None]

NARRATIVE: CASE EVENT DATE: 20210201
